FAERS Safety Report 9717501 (Version 2)
Quarter: 2013Q4

REPORT INFORMATION
  Report Type: Spontaneous
  Country: US (occurrence: US)
  Receive Date: 20131127
  Receipt Date: 20131127
  Transmission Date: 20140711
  Serious: No
  Sender: FDA-Public Use
  Company Number: US-GILEAD-2008-0019674

PATIENT
  Sex: Male

DRUGS (2)
  1. LETAIRIS [Suspect]
     Indication: PULMONARY ARTERIAL HYPERTENSION
     Route: 048
     Dates: end: 20081204
  2. VENTAVIS [Concomitant]
     Dates: start: 200810

REACTIONS (2)
  - Drug ineffective [Recovered/Resolved]
  - Swelling [Not Recovered/Not Resolved]
